FAERS Safety Report 23141668 (Version 1)
Quarter: 2023Q4

REPORT INFORMATION
  Report Type: Spontaneous
  Country: NL (occurrence: None)
  Receive Date: 20231103
  Receipt Date: 20231103
  Transmission Date: 20240110
  Serious: Yes (Life-Threatening, Disabling, Other)
  Sender: FDA-Public Use
  Company Number: 2023A246478

PATIENT
  Age: 64 Year
  Sex: Male
  Weight: 82 kg

DRUGS (3)
  1. DAPAGLIFLOZIN [Suspect]
     Active Substance: DAPAGLIFLOZIN
     Indication: Myocardial infarction
     Dosage: 1 TIME PER DAY
     Route: 048
     Dates: start: 20220101, end: 20231016
  2. DAPAGLIFLOZIN [Suspect]
     Active Substance: DAPAGLIFLOZIN
     Indication: Diabetes mellitus
     Dosage: 1 TIME PER DAY
     Route: 048
     Dates: start: 20220101, end: 20231016
  3. LISINOPRIL [Suspect]
     Active Substance: LISINOPRIL
     Indication: Hypertension
     Dosage: 1 TIME PER DAY
     Route: 048
     Dates: start: 20170101

REACTIONS (2)
  - Poor peripheral circulation [Recovering/Resolving]
  - Neuropathy peripheral [Recovering/Resolving]
